FAERS Safety Report 12647548 (Version 2)
Quarter: 2016Q4

REPORT INFORMATION
  Report Type: Report from Study
  Country: None (occurrence: BE)
  Receive Date: 20160812
  Receipt Date: 20161101
  Transmission Date: 20170207
  Serious: Yes (Death, Hospitalization)
  Sender: FDA-Public Use
  Company Number: BE-ABBVIE-16K-013-1684936-00

PATIENT
  Sex: Male

DRUGS (5)
  1. DUODOPA [Suspect]
     Active Substance: CARBIDOPA\LEVODOPA
     Indication: PARKINSON^S DISEASE
     Dosage: AM: 4ML; CD: 1.4ML/H FOR 16 HRS; ED: 1 ML
     Route: 050
     Dates: start: 20160418, end: 20160422
  2. DUODOPA [Suspect]
     Active Substance: CARBIDOPA\LEVODOPA
     Dosage: AM: 3.5ML; CD: 2.7ML/H FOR 16HRS; ED: 1 ML
     Route: 050
     Dates: start: 20160426, end: 20160718
  3. DUODOPA [Suspect]
     Active Substance: CARBIDOPA\LEVODOPA
     Dosage: AM: 4ML; CD: 3.1ML/H FOR 16HRS; ED: 1 ML
     Route: 050
     Dates: start: 20160718
  4. PROLOPA HBS [Concomitant]
     Active Substance: BENSERAZIDE\LEVODOPA
     Indication: PARKINSON^S DISEASE
     Dosage: FORM STRENGTH: 100MG/25MG, WHEN GOING TO BED
     Route: 048
  5. DUODOPA [Suspect]
     Active Substance: CARBIDOPA\LEVODOPA
     Dosage: CONTINUOUSLY MONITORED AND ADJUSTED
     Route: 050
     Dates: start: 20160422, end: 20160426

REACTIONS (4)
  - Muscle rigidity [Recovering/Resolving]
  - Death [Fatal]
  - Gait disturbance [Unknown]
  - Device use error [Unknown]

NARRATIVE: CASE EVENT DATE: 2016
